FAERS Safety Report 6221950-X (Version None)
Quarter: 2009Q2

REPORT INFORMATION
  Report Type: 
  Country: None (occurrence: None)
  Receive Date: 20090609
  Receipt Date: 20090609
  Transmission Date: 20091009
  Serious: No
  Sender: FDA-Public Use
  Company Number: None

PATIENT
  Sex: Female
  Weight: 91.5 kg

DRUGS (1)
  1. TAXOL [Suspect]
     Dosage: 334 MG

REACTIONS (3)
  - ARTHRALGIA [None]
  - CRYING [None]
  - PAIN IN EXTREMITY [None]
